FAERS Safety Report 23080325 (Version 1)
Quarter: 2023Q4

REPORT INFORMATION
  Report Type: Spontaneous
  Country: US (occurrence: None)
  Receive Date: 20231018
  Receipt Date: 20231018
  Transmission Date: 20240110
  Serious: Yes (Hospitalization)
  Sender: FDA-Public Use
  Company Number: None

PATIENT
  Age: 85 Year
  Sex: Male
  Weight: 89.8 kg

DRUGS (2)
  1. CEFTRIAXONE SODIUM [Suspect]
     Active Substance: CEFTRIAXONE SODIUM
     Dosage: FREQUENCY : DAILY;?
     Route: 042
     Dates: start: 20221109, end: 20221111
  2. CEFEPIME HYDROCHLORIDE [Suspect]
     Active Substance: CEFEPIME HYDROCHLORIDE
     Dosage: FREQUENCY : TWICE A DAY;?
     Route: 042
     Dates: start: 20221111, end: 20221111

REACTIONS (7)
  - Rash [None]
  - Acute generalised exanthematous pustulosis [None]
  - Asthenia [None]
  - Mental status changes [None]
  - Leukocytosis [None]
  - Pneumonia [None]
  - Flushing [None]

NARRATIVE: CASE EVENT DATE: 20221116
